FAERS Safety Report 9338587 (Version 1)
Quarter: 2013Q2

REPORT INFORMATION
  Report Type: Spontaneous
  Country: US (occurrence: US)
  Receive Date: 20130610
  Receipt Date: 20130610
  Transmission Date: 20140414
  Serious: No
  Sender: FDA-Public Use
  Company Number: US-009507513-1306USA000415

PATIENT
  Age: 69 Year
  Sex: Female

DRUGS (2)
  1. NASONEX [Suspect]
     Indication: SEASONAL ALLERGY
     Dosage: ONE-TWO SPRAYS IN EACH NOSTRIL DAILY, DOSE UNSPECIFIED
     Route: 045
  2. NASONEX [Suspect]
     Dosage: UNK
     Route: 045
     Dates: start: 2008

REACTIONS (4)
  - Therapeutic response decreased [Unknown]
  - Product odour abnormal [Unknown]
  - Drug dose omission [Unknown]
  - Inappropriate schedule of drug administration [Unknown]
